FAERS Safety Report 8057569 (Version 3)
Quarter: 2013Q3

REPORT INFORMATION
  Report Type: Report from Study
  Country: US (occurrence: US)
  Receive Date: 20110727
  Receipt Date: 20130926
  Transmission Date: 20140515
  Serious: Yes (Hospitalization, Other)
  Sender: FDA-Public Use
  Company Number: US-ELI_LILLY_AND_COMPANY-US201107005761

PATIENT
  Sex: Female
  Weight: 67.13 kg

DRUGS (10)
  1. TERIPARATIDE [Suspect]
     Indication: OSTEOPOROSIS
     Dosage: 20 UG, QD
     Route: 058
     Dates: start: 2011
  2. TERIPARATIDE [Suspect]
     Dosage: 20 UG, QOD
     Route: 058
  3. TERIPARATIDE [Suspect]
     Dosage: 20 UG, WEEKLY (1/W)
     Route: 058
     Dates: end: 201105
  4. TERIPARATIDE [Suspect]
     Dosage: UNK, UNKNOWN
     Dates: start: 2008
  5. TERIPARATIDE [Suspect]
     Dosage: UNK, UNKNOWN
     Dates: start: 201307
  6. VERAPAMIL [Concomitant]
     Indication: HYPERTENSION
  7. TOPROL [Concomitant]
     Indication: HYPERTENSION
  8. CALCIUM [Concomitant]
  9. VITAMIN D [Concomitant]
  10. BABY ASPIRIN [Concomitant]

REACTIONS (18)
  - Spinal disorder [Unknown]
  - Intervertebral disc disorder [Unknown]
  - Heart rate irregular [Recovered/Resolved]
  - Dyspepsia [Recovered/Resolved]
  - Back pain [Unknown]
  - Blood count abnormal [Unknown]
  - Hypoaesthesia [Unknown]
  - Heart rate increased [Recovered/Resolved]
  - Paraesthesia [Not Recovered/Not Resolved]
  - Dizziness [Recovered/Resolved]
  - Dyspnoea [Recovered/Resolved]
  - Diarrhoea [Recovered/Resolved]
  - Nausea [Recovered/Resolved]
  - Drug prescribing error [Unknown]
  - Presyncope [Unknown]
  - Abdominal discomfort [Unknown]
  - Fracture [Unknown]
  - Injection site bruising [Unknown]
